FAERS Safety Report 7943228-6 (Version None)
Quarter: 2011Q4

REPORT INFORMATION
  Report Type: 
  Country: None (occurrence: None)
  Receive Date: 20111128
  Receipt Date: 20111121
  Transmission Date: 20120403
  Serious: Yes (Death, Hospitalization)
  Sender: FDA-Public Use
  Company Number: PHHY2011AU96232

PATIENT

DRUGS (1)
  1. CLOZAPINE [Suspect]
     Dosage: 750 MG, DAILY

REACTIONS (1)
  - MYOCARDITIS [None]
